FAERS Safety Report 4913865-1 (Version None)
Quarter: 2006Q1

REPORT INFORMATION
  Report Type: 
  Country: None (occurrence: None)
  Receive Date: 20060216
  Receipt Date: 20051004
  Transmission Date: 20060701
  Serious: Yes (Death, Other)
  Sender: FDA-Public Use
  Company Number: US-MERCK-0510USA03993

PATIENT
  Age: 62 Year
  Sex: Male
  Weight: 114 kg

DRUGS (22)
  1. VIOXX [Suspect]
     Indication: BACK PAIN
     Route: 048
     Dates: start: 20021114, end: 20040901
  2. AMLODIPINE [Concomitant]
     Indication: HYPERTENSION
     Route: 048
  3. AMLODIPINE [Concomitant]
     Route: 048
  4. AMOXICILLIN [Concomitant]
     Indication: INFECTION
     Route: 065
  5. ASPIRIN [Concomitant]
     Route: 065
  6. AVAPRO [Concomitant]
     Indication: HYPERTENSION
     Route: 065
  7. AZITHROMYCIN [Concomitant]
     Indication: SINUS DISORDER
     Route: 065
  8. CALCIUM CARBONATE [Concomitant]
     Indication: ROUTINE HEALTH MAINTENANCE
     Route: 065
  9. COMBIVENT [Concomitant]
     Indication: DYSPNOEA
     Route: 065
  10. COZAAR [Concomitant]
     Route: 065
  11. DUOFILM LIQUID [Concomitant]
     Indication: SKIN LESION EXCISION
     Route: 065
  12. ERYTHROMYCIN [Concomitant]
     Indication: DYSPNOEA
     Route: 065
  13. HYDROCHLOROTHIAZIDE [Concomitant]
     Indication: HYPERTENSION
     Route: 065
  14. LANSOPRAZOLE [Concomitant]
     Indication: GASTROOESOPHAGEAL REFLUX DISEASE
     Route: 065
  15. LISINOPRIL [Concomitant]
     Indication: HYPERTENSION
     Route: 065
     Dates: end: 20030301
  16. METRONIDAZOLE [Concomitant]
     Indication: INFECTION
     Route: 065
  17. POLYMYXIN [Concomitant]
     Indication: EYE IRRITATION
     Route: 065
  18. ROBITUSSIN [Concomitant]
     Indication: COUGH
     Route: 065
  19. SALSALATE [Concomitant]
     Indication: DYSPNOEA
     Route: 065
  20. SODIUM CHLORIDE [Concomitant]
     Indication: SINUS DISORDER
     Route: 065
  21. TEARS NATURALE [Concomitant]
     Indication: EYE IRRITATION
     Route: 065
  22. TOPROL-XL [Concomitant]
     Route: 065

REACTIONS (7)
  - ARTHRALGIA [None]
  - CARDIOVASCULAR DISORDER [None]
  - DIZZINESS [None]
  - DYSLIPIDAEMIA [None]
  - DYSPNOEA EXERTIONAL [None]
  - MYOCARDIAL INFARCTION [None]
  - OSTEOARTHRITIS [None]
